FAERS Safety Report 6406181-2 (Version None)
Quarter: 2009Q4

REPORT INFORMATION
  Report Type: 
  Country: None (occurrence: None)
  Receive Date: 20091014
  Receipt Date: 20090930
  Transmission Date: 20100525
  Serious: Yes (Death, Hospitalization)
  Sender: FDA-Public Use
  Company Number: 2009AC000029

PATIENT
  Age: 49 Year
  Sex: Male

DRUGS (10)
  1. DIGOXIN [Suspect]
     Dosage: 0.125 MG; PO
     Route: 048
  2. LOPRESSOR [Concomitant]
  3. AMIODARONE [Concomitant]
  4. LASIX [Concomitant]
  5. LISINOPRIL [Concomitant]
  6. DIOVAN [Concomitant]
  7. SPIRONOLACTONE [Concomitant]
  8. COREG [Concomitant]
  9. POTASSIUM CHLORIDE [Concomitant]
  10. HYDROCODONE [Concomitant]

REACTIONS (27)
  - ARRHYTHMIA [None]
  - CARDIAC ARREST [None]
  - CARDIOMYOPATHY [None]
  - COMA [None]
  - CONFUSIONAL STATE [None]
  - CYANOSIS [None]
  - DISORIENTATION [None]
  - DIZZINESS [None]
  - FATIGUE [None]
  - HYPERGLYCAEMIA [None]
  - HYPERTENSION [None]
  - HYPOTENSION [None]
  - HYPOXIA [None]
  - LETHARGY [None]
  - METABOLIC SYNDROME [None]
  - NAUSEA [None]
  - OEDEMA PERIPHERAL [None]
  - RASH [None]
  - RENAL FAILURE [None]
  - SOMNOLENCE [None]
  - TACHYCARDIA [None]
  - UNRESPONSIVE TO STIMULI [None]
  - URINARY TRACT INFECTION STAPHYLOCOCCAL [None]
  - VENTRICULAR FIBRILLATION [None]
  - VIRAL INFECTION [None]
  - VOMITING [None]
  - WEIGHT INCREASED [None]
